FAERS Safety Report 7136182-0 (Version None)
Quarter: 2010Q4

REPORT INFORMATION
  Report Type: 
  Country: None (occurrence: None)
  Receive Date: 20101206
  Receipt Date: 20101124
  Transmission Date: 20110411
  Serious: Yes (Hospitalization)
  Sender: FDA-Public Use
  Company Number: US-BIOGENIDEC-2010BI032771

PATIENT
  Age: 67 Year
  Sex: Female

DRUGS (22)
  1. TYSABRI [Suspect]
     Indication: MULTIPLE SCLEROSIS
     Route: 042
     Dates: start: 20080411
  2. PLAVIX [Concomitant]
     Indication: CORONARY ARTERY DISEASE
  3. SINGULAIR [Concomitant]
     Indication: ASTHMA
  4. LEXAPRO [Concomitant]
     Indication: BIPOLAR I DISORDER
  5. ALBUTEROL INHALER [Concomitant]
     Indication: ASTHMA
  6. ADVAIR [Concomitant]
     Indication: ASTHMA
  7. ASPIRIN [Concomitant]
     Indication: CORONARY ARTERY DISEASE
  8. TRILEPTAL [Concomitant]
  9. ZOCOR [Concomitant]
  10. PRIMIDONE [Concomitant]
     Indication: ESSENTIAL TREMOR
  11. METOPROLOL [Concomitant]
     Indication: HYPERTENSION
  12. MIDODRINE HYDROCHLORIDE [Concomitant]
     Indication: ORTHOSTATIC HYPOTENSION
  13. CALCIUM [Concomitant]
  14. NASONEX [Concomitant]
  15. ARICEPT [Concomitant]
     Indication: DEMENTIA
  16. VITAMIN D [Concomitant]
  17. SEROQUEL [Concomitant]
     Indication: BIPOLAR I DISORDER
  18. HYDROCHLOROQUINE [Concomitant]
  19. PRINIVIL [Concomitant]
     Indication: HYPERTENSION
  20. FERROUS SULFATE [Concomitant]
  21. FLORINEF [Concomitant]
  22. PEPCID [Concomitant]

REACTIONS (6)
  - FALL [None]
  - HEMIPARESIS [None]
  - HYPONATRAEMIA [None]
  - MENTAL STATUS CHANGES [None]
  - SUBDURAL HAEMATOMA [None]
  - URINARY TRACT INFECTION [None]
